FAERS Safety Report 19598326 (Version 1)
Quarter: 2021Q3

REPORT INFORMATION
  Report Type: Spontaneous
  Country: NL (occurrence: NL)
  Receive Date: 20210722
  Receipt Date: 20210722
  Transmission Date: 20211014
  Serious: Yes (Disabling)
  Sender: FDA-Public Use
  Company Number: NVSC2021NL164165

PATIENT
  Sex: Female
  Weight: 89 kg

DRUGS (1)
  1. REVOLADE [Suspect]
     Active Substance: ELTROMBOPAG OLAMINE
     Indication: IMMUNE THROMBOCYTOPENIA
     Dosage: 25 MG, QD (1X PER DAG 1 TABLET)
     Route: 065
     Dates: start: 20200901

REACTIONS (1)
  - Muscular weakness [Recovering/Resolving]
